FAERS Safety Report 14817188 (Version 2)
Quarter: 2018Q2

REPORT INFORMATION
  Report Type: Spontaneous
  Country: US (occurrence: US)
  Receive Date: 20180426
  Receipt Date: 20180501
  Transmission Date: 20180711
  Serious: No
  Sender: FDA-Public Use
  Company Number: US-GE HEALTHCARE LIFE SCIENCES-2018CSU001545

PATIENT
  Age: 42 Year
  Sex: Female
  Weight: 71.2 kg

DRUGS (4)
  1. PLAQUENIL                          /00072602/ [Concomitant]
     Active Substance: HYDROXYCHLOROQUINE DIPHOSPHATE
     Dosage: 200 MG, BID
  2. DULCOLAX (BISACODYL) [Concomitant]
     Active Substance: BISACODYL
     Dosage: 5 MG, PRN
  3. VISIPAQUE [Suspect]
     Active Substance: IODIXANOL
     Indication: ABDOMINAL PAIN
     Dosage: 100 ML, SINGLE
     Route: 042
     Dates: start: 20180410, end: 20180410
  4. BIOTIN [Concomitant]
     Active Substance: BIOTIN
     Dosage: 5000 MCG, QD

REACTIONS (2)
  - Swelling [Unknown]
  - Rash [Recovered/Resolved]

NARRATIVE: CASE EVENT DATE: 20180411
